FAERS Safety Report 14669572 (Version 1)
Quarter: 2018Q1

REPORT INFORMATION
  Report Type: Report from Study
  Country: US (occurrence: US)
  Receive Date: 20180322
  Receipt Date: 20180322
  Transmission Date: 20180509
  Serious: No
  Sender: FDA-Public Use
  Company Number: PHEH2018US009535

PATIENT
  Weight: 28.8 kg

DRUGS (2)
  1. OMNITROPE [Suspect]
     Active Substance: SOMATROPIN
     Indication: GROWTH HORMONE DEFICIENCY
     Dosage: 2.8 MG, QD
     Route: 058
     Dates: start: 20120608
  2. OMNITROPE [Suspect]
     Active Substance: SOMATROPIN
     Indication: ADRENOCORTICOTROPIC HORMONE DEFICIENCY

REACTIONS (4)
  - Ear infection [Unknown]
  - Influenza [Unknown]
  - Hypoacusis [Unknown]
  - Sensitivity to weather change [Unknown]
